FAERS Safety Report 6667647-3 (Version None)
Quarter: 2010Q2

REPORT INFORMATION
  Report Type: 
  Country: None (occurrence: None)
  Receive Date: 20100405
  Receipt Date: 20100329
  Transmission Date: 20101027
  Serious: Yes (Hospitalization, Other)
  Sender: FDA-Public Use
  Company Number: A0853132A

PATIENT

DRUGS (1)
  1. LAMICTAL XR [Suspect]
     Indication: EPILEPSY
     Route: 048

REACTIONS (2)
  - CONVULSION [None]
  - DRUG TOXICITY [None]
